FAERS Safety Report 20369140 (Version 2)
Quarter: 2022Q1

REPORT INFORMATION
  Report Type: Spontaneous
  Country: NL (occurrence: NL)
  Receive Date: 20220124
  Receipt Date: 20220131
  Transmission Date: 20220423
  Serious: Yes (Other)
  Sender: FDA-Public Use
  Company Number: NL-GSKCCFEMEA-Case-01393357_AE-53613

PATIENT
  Sex: Female

DRUGS (3)
  1. PAROXETINE HYDROCHLORIDE [Suspect]
     Active Substance: PAROXETINE HYDROCHLORIDE
     Indication: Panic attack
     Dosage: DECREASING THE DOSE BY 10TH OF A ML PER MONTH
     Route: 065
  2. PAROXETINE HYDROCHLORIDE [Suspect]
     Active Substance: PAROXETINE HYDROCHLORIDE
     Indication: Panic attack
     Dosage: 20 MILLIGRAM
     Route: 065
  3. PAROXETINE HYDROCHLORIDE [Suspect]
     Active Substance: PAROXETINE HYDROCHLORIDE
     Dosage: 2.5 MILLIGRAM
     Route: 065

REACTIONS (11)
  - Drug abuse [Unknown]
  - Night sweats [Unknown]
  - Fatigue [Unknown]
  - Product use issue [Unknown]
  - Depressed mood [Unknown]
  - Electric shock [Unknown]
  - Paraesthesia [Unknown]
  - Electric shock sensation [Unknown]
  - Withdrawal syndrome [Unknown]
  - Dizziness [Unknown]
  - Diarrhoea [Unknown]
